FAERS Safety Report 17988051 (Version 1)
Quarter: 2020Q3

REPORT INFORMATION
  Report Type: Spontaneous
  Country: US (occurrence: US)
  Receive Date: 20200706
  Receipt Date: 20200706
  Transmission Date: 20201103
  Serious: Yes (Hospitalization)
  Sender: FDA-Public Use
  Company Number: None

PATIENT
  Age: 69 Year
  Sex: Male
  Weight: 75.6 kg

DRUGS (15)
  1. SODIUM POLYSTYRENE SULFONATE. [Concomitant]
     Active Substance: SODIUM POLYSTYRENE SULFONATE
  2. SULFONATE [Concomitant]
  3. ATORVASTATIN [Concomitant]
     Active Substance: ATORVASTATIN
  4. ISOSORBIDE MONOTITRATE ER [Concomitant]
  5. PROCHLORPERAZINE MALEATE. [Concomitant]
     Active Substance: PROCHLORPERAZINE MALEATE
  6. CYCLOPHOSPHAMIDE. [Suspect]
     Active Substance: CYCLOPHOSPHAMIDE
     Indication: PLASMA CELL MYELOMA
     Dosage: ?          OTHER FREQUENCY:ONCE A WEEK;?
     Route: 048
     Dates: start: 20200406
  7. ACYCLOVIR. [Concomitant]
     Active Substance: ACYCLOVIR
  8. ASPIRIN 81 [Concomitant]
     Active Substance: ASPIRIN
  9. NITROGLYCERIN. [Concomitant]
     Active Substance: NITROGLYCERIN
  10. ONDANSETRON [Concomitant]
     Active Substance: ONDANSETRON
  11. EZETIMIBE. [Concomitant]
     Active Substance: EZETIMIBE
  12. NINLARO [Suspect]
     Active Substance: IXAZOMIB CITRATE
     Indication: PLASMA CELL MYELOMA
     Dosage: ?          OTHER FREQUENCY:ONCE A WEEK;?
     Route: 048
     Dates: start: 20200406
  13. CARVEDILOL. [Concomitant]
     Active Substance: CARVEDILOL
  14. FAMOTIDINE. [Concomitant]
     Active Substance: FAMOTIDINE
  15. DEXAMETHASONE. [Concomitant]
     Active Substance: DEXAMETHASONE

REACTIONS (1)
  - Hospitalisation [None]

NARRATIVE: CASE EVENT DATE: 20200702
